FAERS Safety Report 11830209 (Version 1)
Quarter: 2015Q4

REPORT INFORMATION
  Report Type: Spontaneous
  Country: HU (occurrence: HU)
  Receive Date: 20151214
  Receipt Date: 20151214
  Transmission Date: 20160305
  Serious: Yes (Hospitalization, Other)
  Sender: FDA-Public Use
  Company Number: HU-ROCHE-1674236

PATIENT
  Age: 70 Year
  Sex: Female

DRUGS (2)
  1. ZELBORAF [Suspect]
     Active Substance: VEMURAFENIB
     Indication: MALIGNANT MELANOMA
     Route: 048
     Dates: start: 201509, end: 2015
  2. ZELBORAF [Suspect]
     Active Substance: VEMURAFENIB
     Route: 048
     Dates: start: 2015, end: 2015

REACTIONS (7)
  - Drug ineffective [Unknown]
  - Pyrexia [Unknown]
  - Decreased appetite [Unknown]
  - Keratoacanthoma [Recovered/Resolved]
  - Disease progression [Unknown]
  - Vomiting [Unknown]
  - Malaise [Unknown]
